FAERS Safety Report 11634261 (Version 3)
Quarter: 2015Q4

REPORT INFORMATION
  Report Type: Other
  Country: JP (occurrence: JP)
  Receive Date: 20151015
  Receipt Date: 20151219
  Transmission Date: 20160304
  Serious: Yes (Congenital Anomaly, Other)
  Sender: FDA-Public Use
  Company Number: JP-GUERBET LLC-1043005

PATIENT
  Sex: Male
  Weight: 1.94 kg

DRUGS (1)
  1. LIPIODOL [Suspect]
     Active Substance: ETHIODIZED OIL
     Indication: FOETAL EXPOSURE TIMING UNSPECIFIED
     Route: 064
     Dates: start: 20101110

REACTIONS (2)
  - Thyroid function test abnormal [Not Recovered/Not Resolved]
  - Premature baby [Unknown]
